FAERS Safety Report 4517266-X (Version None)
Quarter: 2004Q4

REPORT INFORMATION
  Report Type: 
  Country: None (occurrence: None)
  Receive Date: 20041001
  Receipt Date: 20040522
  Transmission Date: 20050328
  Serious: Yes (Other)
  Sender: FDA-Public Use
  Company Number: PHEH2004US05743

PATIENT
  Sex: Female

DRUGS (7)
  1. LOPRESSOR [Suspect]
     Dates: start: 20040301, end: 20040501
  2. ALTACE [Suspect]
     Dates: start: 20040301, end: 20040501
  3. PLAVIX [Concomitant]
  4. ASPIRIN [Concomitant]
  5. AVANDIA [Concomitant]
  6. GLUCOFAGE [Concomitant]
  7. LIPITOR [Concomitant]

REACTIONS (2)
  - BLOOD PRESSURE DECREASED [None]
  - INJURY [None]
